FAERS Safety Report 24004609 (Version 2)
Quarter: 2024Q3

REPORT INFORMATION
  Report Type: Spontaneous
  Country: US (occurrence: US)
  Receive Date: 20240624
  Receipt Date: 20240706
  Transmission Date: 20241016
  Serious: Yes (Other)
  Sender: BAYER
  Company Number: US-BAYER-2024A085722

PATIENT
  Age: 54 Year
  Sex: Female

DRUGS (1)
  1. CLIMARA PRO [Suspect]
     Active Substance: ESTRADIOL\LEVONORGESTREL
     Dosage: UNK
     Route: 062
     Dates: start: 202403

REACTIONS (4)
  - Uterine haemorrhage [Recovered/Resolved]
  - Abdominal pain lower [Recovered/Resolved]
  - Wrong technique in product usage process [None]
  - Device adhesion issue [None]

NARRATIVE: CASE EVENT DATE: 20240612
